FAERS Safety Report 23711247 (Version 1)
Quarter: 2024Q2

REPORT INFORMATION
  Report Type: Spontaneous
  Country: FR (occurrence: FR)
  Receive Date: 20240405
  Receipt Date: 20240405
  Transmission Date: 20240716
  Serious: Yes (Disabling)
  Sender: FDA-Public Use
  Company Number: None

PATIENT
  Age: 52 Year
  Sex: Male
  Weight: 75 kg

DRUGS (10)
  1. METHOTREXATE [Suspect]
     Active Substance: METHOTREXATE
     Indication: Diffuse large B-cell lymphoma
     Dosage: TIME INTERVAL: TOTAL: METHOTREXATE TEVA
     Route: 042
     Dates: start: 20240206, end: 20240206
  2. VALACYCLOVIR HYDROCHLORIDE [Suspect]
     Active Substance: VALACYCLOVIR HYDROCHLORIDE
     Indication: Infection prophylaxis
     Dosage: VALACICLOVIR ARROW
     Route: 048
     Dates: start: 20240201
  3. OXAZEPAM [Suspect]
     Active Substance: OXAZEPAM
     Indication: Anxiety
     Route: 048
     Dates: start: 20240203
  4. RITUXIMAB [Suspect]
     Active Substance: RITUXIMAB
     Indication: Diffuse large B-cell lymphoma
     Dosage: TIME INTERVAL: TOTAL
     Route: 042
     Dates: start: 20240206, end: 20240206
  5. DOXORUBICIN [Suspect]
     Active Substance: DOXORUBICIN
     Indication: Diffuse large B-cell lymphoma
     Dosage: TIME INTERVAL: TOTAL
     Route: 042
     Dates: start: 20240206, end: 20240206
  6. ZOPICLONE [Suspect]
     Active Substance: ZOPICLONE
     Indication: Initial insomnia
     Dosage: ZOPICLONE ARROW LAB
     Route: 048
     Dates: start: 20240131
  7. CYCLOPHOSPHAMIDE [Suspect]
     Active Substance: CYCLOPHOSPHAMIDE
     Indication: Diffuse large B-cell lymphoma
     Dosage: TIME INTERVAL: TOTAL
     Route: 042
     Dates: start: 20240206, end: 20240206
  8. PREVNAR 13 [Suspect]
     Active Substance: STREPTOCOCCUS PNEUMONIAE TYPE 1 CAPSULAR POLYSACCHARIDE DIPHTHERIA CRM197 PROTEIN CONJUGATE ANTIGEN\
     Indication: Immunisation
     Dosage: TIME INTERVAL: TOTAL
     Route: 030
     Dates: start: 20240202, end: 20240202
  9. VINCRISTINE [Suspect]
     Active Substance: VINCRISTINE
     Indication: Diffuse large B-cell lymphoma
     Dosage: TIME INTERVAL: TOTAL: VINCRISTINE TEVA
     Route: 042
     Dates: start: 20240206, end: 20240206
  10. VAXIGRIPTETRA [Suspect]
     Active Substance: INFLUENZA VIRUS VACCINE QUADRIVALENT TYPE A+B
     Indication: Influenza immunisation
     Dosage: TIME INTERVAL: TOTAL
     Route: 030
     Dates: start: 20240202, end: 20240202

REACTIONS (1)
  - Deafness neurosensory [Not Recovered/Not Resolved]

NARRATIVE: CASE EVENT DATE: 20240215
